FAERS Safety Report 25970028 (Version 1)
Quarter: 2025Q4

REPORT INFORMATION
  Report Type: Spontaneous
  Country: US (occurrence: None)
  Receive Date: 20251028
  Receipt Date: 20251028
  Transmission Date: 20260118
  Serious: No
  Sender: UCB
  Company Number: US-UCBSA-2025040274

PATIENT
  Weight: 80.28 kg

DRUGS (3)
  1. BIMZELX [Suspect]
     Active Substance: BIMEKIZUMAB-BKZX
     Indication: Psoriasis
     Dosage: 320 MILLIGRAM, EV 8 WEEKS
  2. LISINOPRIL [Concomitant]
     Active Substance: LISINOPRIL
     Indication: Product used for unknown indication
     Dosage: 10 MILLIGRAM
  3. Mounjaro Subcutaneous Solution Auto [Concomitant]
     Indication: Product used for unknown indication
     Dosage: UNK, 10MG/0.5ML

REACTIONS (2)
  - Psoriasis [Unknown]
  - Inappropriate schedule of product administration [Unknown]
